FAERS Safety Report 11738564 (Version 1)
Quarter: 2015Q4

REPORT INFORMATION
  Report Type: Spontaneous
  Country: US (occurrence: US)
  Receive Date: 20151110
  Receipt Date: 20151110
  Transmission Date: 20160304
  Serious: No
  Sender: FDA-Public Use
  Company Number: US-ELI_LILLY_AND_COMPANY-US201208002251

PATIENT
  Age: 60 Year
  Sex: Female

DRUGS (2)
  1. FORTEO [Suspect]
     Active Substance: TERIPARATIDE
     Dosage: UNK, QD
     Dates: start: 20120802
  2. PROVIGIL [Concomitant]
     Active Substance: MODAFINIL

REACTIONS (4)
  - Dizziness [Unknown]
  - Mood altered [Unknown]
  - Pain [Unknown]
  - Nausea [Unknown]
